FAERS Safety Report 5081323-2 (Version None)
Quarter: 2006Q3

REPORT INFORMATION
  Report Type: 
  Country: None (occurrence: None)
  Receive Date: 20060814
  Receipt Date: 20060814
  Transmission Date: 20061208
  Serious: Yes (Hospitalization)
  Sender: FDA-Public Use
  Company Number: None

PATIENT
  Age: 25 Year
  Sex: Male

DRUGS (2)
  1. EMTRICITABINE/ TENOFOVIR (TRUVADO) [Suspect]
  2. KALETRA [Suspect]

REACTIONS (2)
  - DRUG INTERACTION [None]
  - PANCREATITIS ACUTE [None]
